FAERS Safety Report 12967611 (Version 1)
Quarter: 2016Q4

REPORT INFORMATION
  Report Type: Report from Study
  Country: US (occurrence: US)
  Receive Date: 20161123
  Receipt Date: 20161123
  Transmission Date: 20170207
  Serious: No
  Sender: FDA-Public Use
  Company Number: PHEH2016US030073

PATIENT
  Age: 29 Year
  Weight: 79.37 kg

DRUGS (1)
  1. AFINITOR [Suspect]
     Active Substance: EVEROLIMUS
     Indication: NEUROFIBROMATOSIS
     Dosage: 10 MG, QD
     Route: 048
     Dates: start: 20150301, end: 20150901

REACTIONS (3)
  - Adverse event [Recovering/Resolving]
  - Product use issue [Unknown]
  - Therapeutic response unexpected [Recovering/Resolving]

NARRATIVE: CASE EVENT DATE: 20160301
